FAERS Safety Report 14854474 (Version 1)
Quarter: 2018Q2

REPORT INFORMATION
  Report Type: Spontaneous
  Country: CH (occurrence: CH)
  Receive Date: 20180507
  Receipt Date: 20180507
  Transmission Date: 20180711
  Serious: Yes (Life-Threatening, Hospitalization)
  Sender: FDA-Public Use
  Company Number: CH-PFIZER INC-2018181380

PATIENT
  Age: 64 Year
  Sex: Female

DRUGS (8)
  1. HOLOXAN [Suspect]
     Active Substance: IFOSFAMIDE
     Indication: SARCOMA
     Dosage: 3900 MG, CYCLIC (1ST CYCLE WITH A CYCLE DURATION OF 21 DAYS)
     Route: 042
     Dates: start: 20180403, end: 20180407
  2. VI-DE 3 [Concomitant]
     Active Substance: CHOLECALCIFEROL
     Dosage: 12 GTT, 1X/DAY
     Route: 048
     Dates: start: 20180324
  3. ADRIBLASTIN [Suspect]
     Active Substance: DOXORUBICIN HYDROCHLORIDE
     Indication: SARCOMA
     Dosage: 58 MG,CYCLIC (1ST CYCLE WITH A CYCLE DURATION OF 21 DAYS)
     Route: 042
     Dates: start: 20180403, end: 20180405
  4. GLUCOSE 5% [Concomitant]
     Active Substance: DEXTROSE
     Dosage: UNK
  5. CALCIMAGON D3 [Concomitant]
     Active Substance: CALCIUM\CHOLECALCIFEROL
     Dosage: 1 DF, 1X/DAY
     Route: 048
     Dates: start: 20180324
  6. PRIMPERAN [Concomitant]
     Active Substance: METOCLOPRAMIDE HYDROCHLORIDE
     Indication: PROPHYLAXIS OF NAUSEA AND VOMITING
     Dosage: 10 MG, UNK (A MAXIMUM OF 4 TABLETS IN 24 HOURS IN RESERVE)
     Route: 048
     Dates: start: 20180403
  7. ONDANSETRON TEVA /00955301/ [Concomitant]
     Indication: PROPHYLAXIS OF NAUSEA AND VOMITING
     Dosage: 4 MG, UNK (A MAXIMUM OF 4 TABLETS IN 24 HOURS IN RESERVE)
     Route: 048
     Dates: start: 20180403
  8. NORMAL SALINE [Concomitant]
     Active Substance: SODIUM CHLORIDE
     Dosage: UNK

REACTIONS (4)
  - Febrile bone marrow aplasia [Recovered/Resolved]
  - Mucosal inflammation [Recovered/Resolved]
  - Septic shock [Recovered/Resolved]
  - Neutropenia [Recovered/Resolved]

NARRATIVE: CASE EVENT DATE: 20180413
